FAERS Safety Report 13754549 (Version 1)
Quarter: 2017Q3

REPORT INFORMATION
  Report Type: Spontaneous
  Country: PT (occurrence: PT)
  Receive Date: 20170714
  Receipt Date: 20170714
  Transmission Date: 20171127
  Serious: Yes (Death, Hospitalization)
  Sender: FDA-Public Use
  Company Number: PT-PFIZER INC-2017301515

PATIENT
  Age: 60 Year
  Sex: Female

DRUGS (12)
  1. TRAZODONE [Suspect]
     Active Substance: TRAZODONE HYDROCHLORIDE
  2. MEXAZOLAM [Suspect]
     Active Substance: MEXAZOLAM
  3. IBUPROFEN. [Suspect]
     Active Substance: IBUPROFEN
  4. TRAMADOL/PARACETAMOL [Suspect]
     Active Substance: ACETAMINOPHEN\TRAMADOL
  5. LANSOPRAZOLE. [Suspect]
     Active Substance: LANSOPRAZOLE
  6. FLUPIRTINE [Suspect]
     Active Substance: FLUPIRTINE
  7. PREGABALIN. [Suspect]
     Active Substance: PREGABALIN
  8. OLMESARTAN [Suspect]
     Active Substance: OLMESARTAN
  9. DIAZEPAM. [Suspect]
     Active Substance: DIAZEPAM
  10. PREDNISOLONE. [Suspect]
     Active Substance: PREDNISOLONE
  11. TAPENTADOL [Suspect]
     Active Substance: TAPENTADOL
  12. METAMIZOLE [Suspect]
     Active Substance: METAMIZOLE

REACTIONS (2)
  - Agranulocytosis [Fatal]
  - Toxicity to various agents [Fatal]
